FAERS Safety Report 23258491 (Version 1)
Quarter: 2023Q4

REPORT INFORMATION
  Report Type: Spontaneous
  Country: GB (occurrence: GB)
  Receive Date: 20231204
  Receipt Date: 20231204
  Transmission Date: 20240110
  Serious: Yes (Other)
  Sender: FDA-Public Use
  Company Number: None

PATIENT
  Age: 48 Year
  Sex: Female
  Weight: 45 kg

DRUGS (2)
  1. DORZOLAMIDE HYDROCHLORIDE [Suspect]
     Active Substance: DORZOLAMIDE HYDROCHLORIDE
     Indication: Angle closure glaucoma
     Dosage: 25 MILLIGRAM
     Route: 047
     Dates: start: 20231123, end: 20231125
  2. TIMOLOL [Suspect]
     Active Substance: TIMOLOL
     Indication: Angle closure glaucoma
     Dosage: 25 MILLIGRAM
     Route: 047
     Dates: start: 20231123, end: 20231125

REACTIONS (4)
  - Eczema [Not Recovered/Not Resolved]
  - Swelling [Not Recovered/Not Resolved]
  - Pruritus [Not Recovered/Not Resolved]
  - Eye pain [Not Recovered/Not Resolved]

NARRATIVE: CASE EVENT DATE: 20231123
